FAERS Safety Report 9494344 (Version 1)
Quarter: 2013Q3

REPORT INFORMATION
  Report Type: Spontaneous
  Country: US (occurrence: None)
  Receive Date: 20130828
  Receipt Date: 20130828
  Transmission Date: 20140515
  Serious: Yes (Other)
  Sender: FDA-Public Use
  Company Number: 001587116A

PATIENT
  Age: 82 Year
  Sex: Female

DRUGS (2)
  1. MEANINGFUL BEAUTY ANTIOXIDANT DAY CREME WITH SPF 20 [Suspect]
     Dosage: ONCE DAILY DERMAL
     Dates: start: 20130811
  2. SKIN BRIGHTENING DECOLLETE AND NECK TREATMENT SPF 15 [Suspect]
     Dosage: ONCE DAILY DERMAL
     Dates: start: 20130811

REACTIONS (3)
  - Asthma [None]
  - Dysphagia [None]
  - Pharyngeal oedema [None]
